FAERS Safety Report 9649462 (Version 1)
Quarter: 2013Q4

REPORT INFORMATION
  Report Type: Spontaneous
  Country: US (occurrence: US)
  Receive Date: 20131028
  Receipt Date: 20131028
  Transmission Date: 20140711
  Serious: No
  Sender: FDA-Public Use
  Company Number: US-BAYER-2013-130462

PATIENT
  Age: 78 Year
  Sex: Female
  Weight: 57.14 kg

DRUGS (12)
  1. ALEVE LIQUID GELS [Suspect]
     Indication: ARTHRITIS
     Dosage: 1 DF, QID
     Route: 048
     Dates: start: 20131017
  2. ALEVE CAPLET [Suspect]
     Indication: ARTHRITIS
     Dosage: 1 DF, QID
     Route: 048
     Dates: start: 2010, end: 20131016
  3. ECOTRIN [Concomitant]
  4. COZAAR [Concomitant]
  5. VITAMIN C [Concomitant]
  6. VITAMIN D [Concomitant]
  7. SIMVASTATIN [Concomitant]
  8. NIASPAN [Concomitant]
  9. FESOTERODINE [Concomitant]
  10. CALCIUM [Concomitant]
  11. MAGNESIUM [Concomitant]
  12. FISH OIL [Concomitant]

REACTIONS (4)
  - Drug ineffective [None]
  - Extra dose administered [None]
  - Extra dose administered [None]
  - Incorrect drug administration duration [None]
